FAERS Safety Report 10229841 (Version 2)
Quarter: 2014Q3

REPORT INFORMATION
  Report Type: Spontaneous
  Country: US (occurrence: None)
  Receive Date: 20140609
  Receipt Date: 20140728
  Transmission Date: 20150326
  Serious: Yes (Other)
  Sender: FDA-Public Use
  Company Number: 2373289

PATIENT
  Age: 48 Year
  Sex: Male
  Weight: 84.09 kg

DRUGS (2)
  1. MARCAINE [Suspect]
     Active Substance: BUPIVACAINE HYDROCHLORIDE
     Indication: ARTHRALGIA
     Dosage: 8 ML MILLILITRE(S), UNKNOWN, OTHER
     Route: 050
     Dates: start: 20131212
  2. DEPO-MEDROL [Suspect]
     Active Substance: METHYLPREDNISOLONE ACETATE
     Indication: ARTHRALGIA
     Dosage: 2 MILLILITRE(S), UNKNOWN, OTHER
     Route: 050
     Dates: start: 20131212

REACTIONS (4)
  - Infection [None]
  - Erythema [None]
  - Product quality issue [None]
  - Injection site infection [None]

NARRATIVE: CASE EVENT DATE: 20131212
